FAERS Safety Report 8212849-8 (Version None)
Quarter: 2012Q1

REPORT INFORMATION
  Report Type: 
  Country: None (occurrence: None)
  Receive Date: 20120315
  Receipt Date: 20120306
  Transmission Date: 20120608
  Serious: Yes (Hospitalization, Other)
  Sender: FDA-Public Use
  Company Number: CH-BRISTOL-MYERS SQUIBB COMPANY-16419939

PATIENT
  Age: 63 Year
  Sex: Female

DRUGS (3)
  1. NEXIUM [Concomitant]
     Dosage: ONE TABLET
  2. SPRYCEL [Suspect]
     Indication: CHRONIC MYELOID LEUKAEMIA
     Dosage: INTER ON 16NOV2011 AND RESTARTED 24JAN12 AT DOSE OF 100MG/DAILY
     Route: 048
     Dates: start: 20090420
  3. ASPIRIN [Concomitant]

REACTIONS (2)
  - CHRONIC MYELOID LEUKAEMIA [None]
  - ENDOMETRIAL CANCER [None]
